FAERS Safety Report 5796603-2 (Version None)
Quarter: 2008Q3

REPORT INFORMATION
  Report Type: 
  Country: None (occurrence: None)
  Receive Date: 20080701
  Receipt Date: 20080619
  Transmission Date: 20090109
  Serious: Yes (Life-Threatening)
  Sender: FDA-Public Use
  Company Number: JP-ROCHE-490122

PATIENT
  Sex: Female

DRUGS (1)
  1. TAMIFLU [Suspect]
     Indication: INFLUENZA
     Dosage: 2 MG/KG X 1.
     Route: 065
     Dates: start: 20030122

REACTIONS (10)
  - CARDIO-RESPIRATORY ARREST [None]
  - CONVULSION [None]
  - CYANOSIS [None]
  - DEVELOPMENTAL DELAY [None]
  - FALL [None]
  - HYPOTONIA [None]
  - HYPOXIA [None]
  - HYPOXIC ENCEPHALOPATHY [None]
  - LOSS OF CONSCIOUSNESS [None]
  - RESPIRATORY DEPRESSION [None]
